FAERS Safety Report 17597265 (Version 1)
Quarter: 2020Q1

REPORT INFORMATION
  Report Type: Spontaneous
  Country: US (occurrence: US)
  Receive Date: 20200330
  Receipt Date: 20200330
  Transmission Date: 20200409
  Serious: No
  Sender: FDA-Public Use
  Company Number: US-AUROBINDO-AUR-APL-2019-009251

PATIENT
  Age: 53 Year
  Sex: Male

DRUGS (1)
  1. SERTRALINE HYDROCHLORIDE TABLETS 100MG [Suspect]
     Active Substance: SERTRALINE HYDROCHLORIDE
     Indication: PRODUCT USED FOR UNKNOWN INDICATION
     Route: 065

REACTIONS (8)
  - Thinking abnormal [Unknown]
  - Memory impairment [Unknown]
  - Depressed mood [Unknown]
  - Anxiety [Unknown]
  - Irritability [Unknown]
  - Insomnia [Unknown]
  - Disturbance in attention [Unknown]
  - Product substitution issue [Unknown]
